FAERS Safety Report 15618477 (Version 1)
Quarter: 2018Q4

REPORT INFORMATION
  Report Type: Spontaneous
  Country: US (occurrence: US)
  Receive Date: 20181114
  Receipt Date: 20181114
  Transmission Date: 20190205
  Serious: No
  Sender: FDA-Public Use
  Company Number: US-SUNOVION-2018SUN004351

PATIENT
  Sex: Female
  Weight: 63.49 kg

DRUGS (3)
  1. LATUDA [Suspect]
     Active Substance: LURASIDONE HYDROCHLORIDE
     Indication: DEPRESSION
     Dosage: 20 MG, QD
     Route: 048
     Dates: start: 20180809, end: 20180913
  2. LATUDA [Suspect]
     Active Substance: LURASIDONE HYDROCHLORIDE
     Indication: ANXIETY
     Dosage: 40 MG, QD
     Route: 048
     Dates: start: 20180914
  3. LAMICTAL [Concomitant]
     Active Substance: LAMOTRIGINE
     Dosage: 200 MG, BID
     Route: 048

REACTIONS (4)
  - Menstruation delayed [Not Recovered/Not Resolved]
  - Oral pain [Not Recovered/Not Resolved]
  - Off label use [Unknown]
  - Gingivitis [Not Recovered/Not Resolved]

NARRATIVE: CASE EVENT DATE: 2018
